FAERS Safety Report 5957444-6 (Version None)
Quarter: 2008Q4

REPORT INFORMATION
  Report Type: 
  Country: None (occurrence: None)
  Receive Date: 20081114
  Receipt Date: 20081104
  Transmission Date: 20090506
  Serious: Yes (Hospitalization)
  Sender: FDA-Public Use
  Company Number: 230792K08USA

PATIENT
  Age: 59 Year
  Sex: Female
  Weight: 108 kg

DRUGS (6)
  1. REBIF [Suspect]
     Indication: MULTIPLE SCLEROSIS
     Dosage: 44 MCG, 3 IN 1 WEEKS, SUBCUTANEOUS
     Route: 058
     Dates: start: 20080827
  2. ANESTHESIA (ALL OTHER THERAPEUTIC PRODUCTS) [Suspect]
     Indication: GASTRECTOMY
     Dosage: NOT REPORTED, ONCE, NOT REPORTED
     Dates: start: 20080930, end: 20080930
  3. VERAPAMIL (VERAPAMIL /00014301/) [Concomitant]
  4. ACCUPRIL [Concomitant]
  5. WELLBUTRIN [Concomitant]
  6. PROVIGIL [Concomitant]

REACTIONS (3)
  - BLOOD MAGNESIUM DECREASED [None]
  - BLOOD POTASSIUM DECREASED [None]
  - VENTRICULAR EXTRASYSTOLES [None]
